FAERS Safety Report 24343604 (Version 1)
Quarter: 2024Q3

REPORT INFORMATION
  Report Type: Spontaneous
  Country: CN (occurrence: CN)
  Receive Date: 20240920
  Receipt Date: 20240920
  Transmission Date: 20241016
  Serious: Yes (Other)
  Sender: RANBAXY
  Company Number: CN-SUN PHARMACEUTICAL INDUSTRIES LTD-2024R1-468832

PATIENT
  Age: 52 Year
  Sex: Female

DRUGS (6)
  1. DEXAMETHASONE [Suspect]
     Active Substance: DEXAMETHASONE
     Indication: Chemotherapy
     Dosage: 15 MILLIGRAM, QD ON DAY 1-5 SIX CYCLES
     Route: 065
     Dates: start: 20230717
  2. DESMOPRESSIN [Suspect]
     Active Substance: DESMOPRESSIN
     Indication: Diabetes insipidus
     Dosage: UNK
     Route: 048
  3. LEVOTHYROXINE SODIUM [Suspect]
     Active Substance: LEVOTHYROXINE SODIUM
     Indication: Hypothyroidism
     Dosage: UNK
     Route: 048
  4. CYCLOPHOSPHAMIDE [Suspect]
     Active Substance: CYCLOPHOSPHAMIDE
     Indication: Chemotherapy
     Dosage: 750 MILLIGRAM/SQ. METER ON DAY 1 SIX CYCLES
     Route: 065
     Dates: start: 20230717
  5. ETOPOSIDE [Suspect]
     Active Substance: ETOPOSIDE
     Indication: Chemotherapy
     Dosage: 0.1 GRAM PER SQUARE METRE ON DAY 1-4 SIX CYCLES
     Route: 065
     Dates: start: 20230717
  6. VINDESINE [Suspect]
     Active Substance: VINDESINE
     Indication: Chemotherapy
     Dosage: 3 MILLIGRAM/SQ. METER ON DAY 1 SIX CYCLES
     Route: 065
     Dates: start: 20230717

REACTIONS (3)
  - Localised infection [Recovered/Resolved]
  - Myelosuppression [Recovered/Resolved]
  - Therapy partial responder [Unknown]
